FAERS Safety Report 16035364 (Version 1)
Quarter: 2019Q1

REPORT INFORMATION
  Report Type: Spontaneous
  Country: US (occurrence: US)
  Receive Date: 20190305
  Receipt Date: 20190305
  Transmission Date: 20190418
  Serious: No
  Sender: FDA-Public Use
  Company Number: US-SA-2019SA060104

PATIENT
  Sex: Female
  Weight: 101 kg

DRUGS (7)
  1. KENALOG [Concomitant]
     Active Substance: TRIAMCINOLONE ACETONIDE
  2. PREDNISONE. [Concomitant]
     Active Substance: PREDNISONE
     Dosage: 8 MG, QD
     Route: 048
  3. SULFASALAZINE. [Concomitant]
     Active Substance: SULFASALAZINE
     Dosage: 3 DF, BID
     Route: 048
  4. LOSARTAN. [Concomitant]
     Active Substance: LOSARTAN
     Indication: HYPERTENSION
     Dosage: 500 MG, QD
     Route: 065
  5. ARAVA [Suspect]
     Active Substance: LEFLUNOMIDE
     Indication: RHEUMATOID ARTHRITIS
     Dosage: 20 MG, QD
     Route: 065
  6. VENLAFAXINE [Concomitant]
     Active Substance: VENLAFAXINE HYDROCHLORIDE
     Dosage: 75 MG CAPSULE BY MOUTH IN AM AND 37.5 CAPSULE TAKEN BY MOUTH IN PM DAILY
     Route: 048
  7. ZANTAC [Concomitant]
     Active Substance: RANITIDINE HYDROCHLORIDE
     Indication: GASTROOESOPHAGEAL REFLUX DISEASE
     Dosage: 75 MG, PRN

REACTIONS (1)
  - Drug ineffective [Unknown]
